FAERS Safety Report 20164928 (Version 3)
Quarter: 2021Q4

REPORT INFORMATION
  Report Type: Report from Study
  Country: IT (occurrence: None)
  Receive Date: 20211209
  Receipt Date: 20211217
  Transmission Date: 20220303
  Serious: Yes (Death)
  Sender: FDA-Public Use
  Company Number: IT-ROCHE-2973783

PATIENT
  Age: 56 Year
  Sex: Female
  Weight: 56 kg

DRUGS (4)
  1. ATEZOLIZUMAB [Suspect]
     Active Substance: ATEZOLIZUMAB
     Indication: Non-small cell lung cancer
     Dosage: MOST RECENT DOSE OF ATEZOLIZUMAB 24/SEP/2021
     Route: 041
     Dates: start: 20210722, end: 20211015
  2. BEVACIZUMAB [Suspect]
     Active Substance: BEVACIZUMAB
     Indication: Non-small cell lung cancer
     Dosage: MOST RECENT DOSE OF BEVACIZUMAB WAS 24/SEP/2021
     Route: 042
     Dates: start: 20210722, end: 20211015
  3. BISOPROLOL [Concomitant]
     Active Substance: BISOPROLOL
     Indication: Heart rate increased
     Dates: start: 20210810
  4. PALEXIA [Concomitant]
     Active Substance: TAPENTADOL HYDROCHLORIDE
     Indication: Pain
     Dates: start: 20210812

REACTIONS (1)
  - Death [Fatal]
